FAERS Safety Report 24025820 (Version 2)
Quarter: 2024Q3

REPORT INFORMATION
  Report Type: Report from Study
  Country: TR (occurrence: TR)
  Receive Date: 20240628
  Receipt Date: 20240710
  Transmission Date: 20241017
  Serious: No
  Sender: ROCHE
  Company Number: TR-ROCHE-2980736

PATIENT
  Age: 52 Year
  Sex: Female

DRUGS (18)
  1. ALECTINIB [Suspect]
     Active Substance: ALECTINIB
     Indication: Non-small cell lung cancer metastatic
     Route: 048
     Dates: start: 20210622
  2. KEPPRA [Concomitant]
     Active Substance: LEVETIRACETAM
     Route: 048
     Dates: start: 202105
  3. DURAGESIC [Concomitant]
     Active Substance: FENTANYL
     Route: 062
     Dates: start: 202105
  4. WARFARIN SODIUM [Concomitant]
     Active Substance: WARFARIN SODIUM
     Route: 048
     Dates: start: 2008
  5. WARFARIN SODIUM [Concomitant]
     Active Substance: WARFARIN SODIUM
     Route: 048
     Dates: start: 20211230
  6. SEREX (TURKEY) [Concomitant]
     Indication: Anxiety
     Route: 048
     Dates: start: 202107
  7. GRANEXA [Concomitant]
     Route: 048
     Dates: start: 202105
  8. GRANEXA [Concomitant]
     Route: 048
     Dates: start: 20220113
  9. PANTOPRAZOLE [Concomitant]
     Active Substance: PANTOPRAZOLE
     Route: 048
     Dates: start: 202105
  10. TRAMADOL HYDROCHLORIDE [Concomitant]
     Active Substance: TRAMADOL HYDROCHLORIDE
     Route: 048
     Dates: start: 202105
  11. HALOPERIDOL [Concomitant]
     Active Substance: HALOPERIDOL
     Indication: Hallucination
     Route: 047
     Dates: start: 202106
  12. OKSAPAR [Concomitant]
     Route: 030
     Dates: start: 20211231
  13. GRANEXA [Concomitant]
     Route: 048
     Dates: start: 20220113
  14. ISOTONIC SODIUM CHLORIDE SOLUTION [Concomitant]
     Active Substance: SODIUM CHLORIDE
     Route: 042
     Dates: start: 20220223, end: 20220223
  15. ISOTONIC SODIUM CHLORIDE SOLUTION [Concomitant]
     Active Substance: SODIUM CHLORIDE
     Route: 042
     Dates: start: 20220223, end: 20220223
  16. METOCLOPRAMIDE HYDROCHLORIDE [Concomitant]
     Active Substance: METOCLOPRAMIDE HYDROCHLORIDE
     Indication: Nausea
     Route: 042
     Dates: start: 20220222, end: 20220222
  17. METOCLOPRAMIDE HYDROCHLORIDE [Concomitant]
     Active Substance: METOCLOPRAMIDE HYDROCHLORIDE
     Indication: Vomiting
     Route: 042
     Dates: start: 20220223, end: 20220223
  18. LORLATINIB [Concomitant]
     Active Substance: LORLATINIB
     Dates: start: 202209, end: 20221103

REACTIONS (1)
  - White blood cells urine positive [Not Recovered/Not Resolved]

NARRATIVE: CASE EVENT DATE: 20211109
